FAERS Safety Report 24638864 (Version 1)
Quarter: 2024Q4

REPORT INFORMATION
  Report Type: Spontaneous
  Country: US (occurrence: US)
  Receive Date: 20241119
  Receipt Date: 20241119
  Transmission Date: 20250115
  Serious: Yes (Hospitalization, Other)
  Sender: VERTEX
  Company Number: US-VERTEX PHARMACEUTICALS-2024-017786

PATIENT
  Age: 16 Year
  Sex: Male

DRUGS (1)
  1. TRIKAFTA [Suspect]
     Active Substance: ELEXACAFTOR\IVACAFTOR\TEZACAFTOR
     Indication: Cystic fibrosis
     Dosage: 2 TABS (TOTAL ELEXA 200 MG/TEZA 100 MG/IVA 150 MG) IN AM AND ONE IVA 150 MG TAB PM
     Route: 048
     Dates: start: 202110, end: 202408

REACTIONS (1)
  - Psychogenic seizure [Not Recovered/Not Resolved]

NARRATIVE: CASE EVENT DATE: 20240812
